FAERS Safety Report 9737485 (Version 2)
Quarter: 2014Q1

REPORT INFORMATION
  Report Type: Spontaneous
  Country: FR (occurrence: FR)
  Receive Date: 20131206
  Receipt Date: 20140312
  Transmission Date: 20141002
  Serious: Yes (Hospitalization)
  Sender: FDA-Public Use
  Company Number: FR-B.I. PHARMACEUTICALS,INC./RIDGEFIELD-2013-BI-40102FF

PATIENT
  Age: 69 Year
  Sex: Female
  Weight: 91 kg

DRUGS (11)
  1. PRADAXA [Suspect]
     Indication: PRODUCT USED FOR UNKNOWN INDICATION
     Dosage: 300 MG
     Route: 048
  2. LASILIX [Concomitant]
     Dosage: 40 MG
     Route: 048
  3. DIFFU K [Concomitant]
     Route: 048
  4. HEMIGOXINE NATIVELLE [Concomitant]
     Dosage: 0.125 MG
     Route: 048
  5. AMAREL [Concomitant]
     Dosage: 1 MG
     Route: 048
  6. CELECTOL [Concomitant]
     Dosage: 400 MG
     Route: 048
  7. LEVOTHYROX [Concomitant]
     Dosage: 75 MCG
     Route: 048
  8. PERINDOPRIL [Concomitant]
     Dosage: 4 MG
     Route: 048
  9. TAHOR [Concomitant]
     Dosage: 80 MG
     Route: 048
  10. SPIRIVA [Concomitant]
     Route: 055
  11. VENTOLINE [Concomitant]
     Route: 055

REACTIONS (2)
  - Cerebral ischaemia [Unknown]
  - Drug ineffective [Unknown]
